FAERS Safety Report 8266185-4 (Version None)
Quarter: 2012Q2

REPORT INFORMATION
  Report Type: 
  Country: None (occurrence: None)
  Receive Date: 20120406
  Receipt Date: 20120403
  Transmission Date: 20120825
  Serious: Yes (Hospitalization, Other)
  Sender: FDA-Public Use
  Company Number: US-PFIZER INC-2012010997

PATIENT
  Sex: Male
  Weight: 102 kg

DRUGS (8)
  1. ZANTAC [Concomitant]
     Indication: GASTROOESOPHAGEAL REFLUX DISEASE
     Dosage: 75 MG TWO TIMES A DAY
  2. LIPITOR [Suspect]
     Indication: BLOOD CHOLESTEROL INCREASED
     Dosage: 20 MG, DAILY AT NIGHT
     Route: 048
     Dates: start: 20101101
  3. LASIX [Concomitant]
     Indication: DIURETIC THERAPY
     Dosage: 20 MG, DAILY
  4. LIPITOR [Suspect]
     Dosage: 40 MG, DAILY AT NIGHT
     Route: 048
  5. ASPIRIN [Concomitant]
     Indication: ANTICOAGULANT THERAPY
     Dosage: 81 MG, DAILY
  6. CARVEDILOL [Concomitant]
     Indication: DRUG THERAPY
     Dosage: HALF PILL OF 12.5 MG TWO TIMES A DAY
  7. PLAVIX [Concomitant]
     Indication: ANTICOAGULANT THERAPY
     Dosage: 75 MG, DAILY
  8. COZAAR [Concomitant]
     Indication: DRUG THERAPY
     Dosage: 25 MG, DAILY

REACTIONS (2)
  - MYOCARDIAL INFARCTION [None]
  - CARDIAC FAILURE CONGESTIVE [None]
